FAERS Safety Report 6456022-2 (Version None)
Quarter: 2009Q4

REPORT INFORMATION
  Report Type: 
  Country: None (occurrence: None)
  Receive Date: 20091125
  Receipt Date: 20091116
  Transmission Date: 20100525
  Serious: Yes (Hospitalization, Other)
  Sender: FDA-Public Use
  Company Number: JP-JNJFOC-20080805594

PATIENT
  Sex: Male
  Weight: 15 kg

DRUGS (7)
  1. ITRIZOLE [Suspect]
     Route: 048
  2. ITRIZOLE [Suspect]
     Indication: PULMONARY MYCOSIS
     Route: 048
  3. AMBISOME [Suspect]
     Indication: PULMONARY MYCOSIS
     Route: 041
  4. AMPHOTERICIN B [Suspect]
     Indication: PULMONARY MYCOSIS
     Route: 041
  5. CEFTRIAXONE SODIUM [Concomitant]
     Indication: PNEUMONIA
     Route: 042
  6. AZITHROMYCIN HYDRATE [Concomitant]
     Indication: PNEUMONIA
     Route: 048
  7. BAKTAR [Concomitant]
     Indication: CHRONIC GRANULOMATOUS DISEASE
     Route: 048

REACTIONS (3)
  - HYPOKALAEMIA [None]
  - RHABDOMYOLYSIS [None]
  - TREATMENT NONCOMPLIANCE [None]
